FAERS Safety Report 8586918-7 (Version None)
Quarter: 2012Q3

REPORT INFORMATION
  Report Type: 
  Country: None (occurrence: None)
  Receive Date: 20120810
  Receipt Date: 20120803
  Transmission Date: 20120928
  Serious: Yes (Life-Threatening, Other)
  Sender: FDA-Public Use
  Company Number: CHPA2012US013065

PATIENT
  Age: 66 Year
  Sex: Female

DRUGS (3)
  1. EXCEDRIN EXTRA STRENGTH TABLETS [Suspect]
     Indication: HEADACHE
     Dosage: 1 DF, Q2H QD
     Route: 048
  2. EXCEDRIN EXTRA STRENGTH TABLETS [Suspect]
     Dosage: 2 DF, QD
     Route: 048
  3. EXCEDRIN TENSION HEADACHE CAPLETS [Suspect]
     Indication: HEADACHE
     Dosage: 1 DF, Q2H QD
     Route: 048

REACTIONS (11)
  - CEREBROVASCULAR ACCIDENT [None]
  - MENINGITIS [None]
  - INCORRECT DRUG ADMINISTRATION DURATION [None]
  - PNEUMONIA [None]
  - UNDERDOSE [None]
  - PARALYSIS [None]
  - DRUG DEPENDENCE [None]
  - ARTHRITIS [None]
  - BACK INJURY [None]
  - HEADACHE [None]
  - REBOUND EFFECT [None]
